FAERS Safety Report 12759122 (Version 2)
Quarter: 2016Q3

REPORT INFORMATION
  Report Type: Spontaneous
  Country: IN (occurrence: IN)
  Receive Date: 20160919
  Receipt Date: 20160921
  Transmission Date: 20161109
  Serious: Yes (Death, Life-Threatening, Other)
  Sender: FDA-Public Use
  Company Number: IN-BAYER-2016-179512

PATIENT
  Age: 40 Year
  Sex: Male

DRUGS (1)
  1. ACETYLSALICYLIC ACID (} 100 MG) [Suspect]
     Active Substance: ASPIRIN

REACTIONS (4)
  - Hypertensive cerebrovascular disease [Fatal]
  - Cerebellar haemorrhage [Fatal]
  - Cerebral haemorrhage [Fatal]
  - Subdural haemorrhage [Fatal]
